FAERS Safety Report 21907365 (Version 2)
Quarter: 2023Q1

REPORT INFORMATION
  Report Type: Spontaneous
  Country: JP (occurrence: JP)
  Receive Date: 20230125
  Receipt Date: 20230315
  Transmission Date: 20230418
  Serious: Yes (Hospitalization, Other)
  Sender: FDA-Public Use
  Company Number: JP-ASTELLAS-2022JP016612

PATIENT
  Age: 91 Year
  Sex: Female
  Weight: 55 kg

DRUGS (10)
  1. MIRABEGRON [Suspect]
     Active Substance: MIRABEGRON
     Indication: Hypertonic bladder
     Route: 048
     Dates: start: 20141225, end: 20220907
  2. IMIDAFENACIN [Suspect]
     Active Substance: IMIDAFENACIN
     Indication: Hypertonic bladder
     Dosage: 0.1 MG, TWICE DAILY
     Route: 048
     Dates: start: 20171115, end: 20220907
  3. AMLODIPINE [Concomitant]
     Active Substance: AMLODIPINE BESYLATE
     Indication: Hypertension
     Route: 065
  4. AMLODIPINE [Concomitant]
     Active Substance: AMLODIPINE BESYLATE
     Route: 065
  5. STALEVO [Concomitant]
     Active Substance: CARBIDOPA\ENTACAPONE\LEVODOPA
     Indication: Product used for unknown indication
     Dosage: 1 DF, THRICE DAILY,AFTER BREAKFAST, LUNCH AND DINNER
     Route: 065
  6. CARBIDOPA AND LEVODOPA [Concomitant]
     Active Substance: CARBIDOPA\LEVODOPA
     Indication: Product used for unknown indication
     Dosage: 0.5 DF, THRICE DAILY,AFTER BREAKFAST, LUNCH AND DINNER
     Route: 065
  7. URSODIOL [Concomitant]
     Active Substance: URSODIOL
     Indication: Product used for unknown indication
     Dosage: 200MG, THRICE DAILY,AFTER BREAKFAST, LUNCH AND DINNER
     Route: 065
  8. MAGNESIUM OXIDE [Concomitant]
     Active Substance: MAGNESIUM OXIDE
     Indication: Product used for unknown indication
     Route: 065
  9. HERBALS [Concomitant]
     Active Substance: HERBALS
     Indication: Product used for unknown indication
     Route: 065
  10. BENSERAZIDE HYDROCHLORIDE\LEVODOPA [Concomitant]
     Active Substance: BENSERAZIDE HYDROCHLORIDE\LEVODOPA
     Indication: Product used for unknown indication
     Dosage: UNK UNK, UNKNOWN FREQ.
     Route: 065

REACTIONS (2)
  - Cystitis haemorrhagic [Recovering/Resolving]
  - Urinary retention [Not Recovered/Not Resolved]

NARRATIVE: CASE EVENT DATE: 20220906
